FAERS Safety Report 4611171-6 (Version None)
Quarter: 2005Q1

REPORT INFORMATION
  Report Type: 
  Country: None (occurrence: None)
  Receive Date: 20050314
  Receipt Date: 20040506
  Transmission Date: 20050727
  Serious: Yes (Hospitalization, Other)
  Sender: FDA-Public Use
  Company Number: USA040566513

PATIENT
  Age: 63 Year
  Sex: Female
  Weight: 41 kg

DRUGS (4)
  1. GEMZAR [Suspect]
     Indication: OVARIAN CANCER
     Dates: start: 20040101, end: 20040401
  2. XANAX [Concomitant]
  3. DECADRON SRC [Concomitant]
  4. NEULASTA [Concomitant]

REACTIONS (2)
  - DISEASE PROGRESSION [None]
  - OEDEMA PERIPHERAL [None]
